FAERS Safety Report 8082131-0 (Version None)
Quarter: 2012Q1

REPORT INFORMATION
  Report Type: 
  Country: None (occurrence: None)
  Receive Date: 20120127
  Receipt Date: 20110207
  Transmission Date: 20120608
  Serious: No
  Sender: FDA-Public Use
  Company Number: US-ABBOTT-11P-163-0704355-00

PATIENT
  Sex: Male
  Weight: 112.59 kg

DRUGS (7)
  1. HUMIRA [Suspect]
     Indication: PSORIASIS
     Dates: start: 20110101, end: 20110101
  2. HUMIRA [Suspect]
     Dates: start: 20110101, end: 20110101
  3. HUMIRA [Suspect]
     Dates: start: 20110101, end: 20110101
  4. HUMIRA [Suspect]
  5. FOLIC ACID [Concomitant]
     Indication: VITAMIN SUPPLEMENTATION
  6. LEVETIRACETAM [Concomitant]
     Indication: CONVULSION
  7. ISONIAZID [Concomitant]
     Indication: TUBERCULIN TEST POSITIVE

REACTIONS (2)
  - FATIGUE [None]
  - OROPHARYNGEAL PAIN [None]
